FAERS Safety Report 13773197 (Version 1)
Quarter: 2017Q3

REPORT INFORMATION
  Report Type: Spontaneous
  Country: PL (occurrence: PL)
  Receive Date: 20170720
  Receipt Date: 20170720
  Transmission Date: 20171127
  Serious: Yes (Other)
  Sender: FDA-Public Use
  Company Number: PL-PFIZER INC-2017313174

PATIENT
  Age: 31 Year
  Sex: Male
  Weight: 129 kg

DRUGS (1)
  1. LANTAREL [Suspect]
     Active Substance: METHOTREXATE SODIUM
     Dosage: 15 MG, WEEKLY
     Route: 048
     Dates: start: 20161129, end: 20170514

REACTIONS (5)
  - Aspartate aminotransferase increased [Recovering/Resolving]
  - Asthenia [Recovering/Resolving]
  - Alanine aminotransferase increased [Recovering/Resolving]
  - Decreased appetite [Recovering/Resolving]
  - Blood triglycerides increased [Recovering/Resolving]

NARRATIVE: CASE EVENT DATE: 20170214
